FAERS Safety Report 7274673-2 (Version None)
Quarter: 2011Q1

REPORT INFORMATION
  Report Type: 
  Country: None (occurrence: None)
  Receive Date: 20110202
  Receipt Date: 20110202
  Transmission Date: 20110831
  Serious: Yes (Hospitalization)
  Sender: FDA-Public Use
  Company Number: None

PATIENT
  Age: 58 Year
  Sex: Female
  Weight: 77.1115 kg

DRUGS (1)
  1. VITAMIN D [Suspect]
     Indication: VITAMIN D DECREASED
     Dosage: 5000 DAILY PO
     Route: 048
     Dates: start: 20100401, end: 20110107

REACTIONS (6)
  - CONSTIPATION [None]
  - NAUSEA [None]
  - BLOOD PRESSURE INADEQUATELY CONTROLLED [None]
  - POLLAKIURIA [None]
  - HEPATIC PAIN [None]
  - BLOOD CALCIUM INCREASED [None]
